FAERS Safety Report 4582263-5 (Version None)
Quarter: 2005Q1

REPORT INFORMATION
  Report Type: 
  Country: None (occurrence: None)
  Receive Date: 20050127
  Receipt Date: 20040924
  Transmission Date: 20050727
  Serious: No
  Sender: FDA-Public Use
  Company Number: USA040979202

PATIENT
  Age: 21 Year
  Sex: Male
  Weight: 49 kg

DRUGS (2)
  1. STRATTERA [Suspect]
     Indication: IMPULSE-CONTROL DISORDER
     Dosage: 18 MG DAY
     Dates: start: 20040908
  2. STRATTERA [Suspect]
     Indication: PSYCHOMOTOR HYPERACTIVITY
     Dosage: 18 MG DAY
     Dates: start: 20040908

REACTIONS (2)
  - AGGRESSION [None]
  - DRUG INEFFECTIVE [None]
